FAERS Safety Report 6122527-7 (Version None)
Quarter: 2009Q1

REPORT INFORMATION
  Report Type: 
  Country: None (occurrence: None)
  Receive Date: 20090318
  Receipt Date: 20081211
  Transmission Date: 20090719
  Serious: No
  Sender: FDA-Public Use
  Company Number: US-ASTRAZENECA-2008UW26251

PATIENT
  Age: 47 Year
  Sex: Male
  Weight: 165.6 kg

DRUGS (5)
  1. SYMBICORT [Suspect]
     Indication: ASTHMA
     Dosage: 160/4.5 MCG
     Route: 055
  2. LISINOPRIL [Concomitant]
  3. LASIX [Concomitant]
  4. SINGULAIR [Concomitant]
  5. PROVENTIL [Concomitant]

REACTIONS (3)
  - DYSGEUSIA [None]
  - DYSPNOEA [None]
  - PRODUCT QUALITY ISSUE [None]
